FAERS Safety Report 5941440-9 (Version None)
Quarter: 2008Q4

REPORT INFORMATION
  Report Type: 
  Country: None (occurrence: None)
  Receive Date: 20081103
  Receipt Date: 20081103
  Transmission Date: 20090506
  Serious: Yes (Life-Threatening, Hospitalization)
  Sender: FDA-Public Use
  Company Number: None

PATIENT
  Age: 26 Year
  Sex: Male
  Weight: 95.2554 kg

DRUGS (1)
  1. DESOXYN [Suspect]
     Indication: ATTENTION DEFICIT/HYPERACTIVITY DISORDER
     Dosage: 5MG 1 IN THE MORNING
     Dates: start: 20061020, end: 20061225

REACTIONS (3)
  - DISORIENTATION [None]
  - HEART RATE INCREASED [None]
  - PSYCHOTIC DISORDER [None]
